FAERS Safety Report 4607334-6 (Version None)
Quarter: 2005Q1

REPORT INFORMATION
  Report Type: 
  Country: None (occurrence: None)
  Receive Date: 20050309
  Receipt Date: 20050225
  Transmission Date: 20050727
  Serious: Yes (Hospitalization)
  Sender: FDA-Public Use
  Company Number: 24676

PATIENT
  Age: 71 Year
  Sex: Male

DRUGS (12)
  1. FLECAINIDE ACETATE [Suspect]
     Dosage: 100 MG (5O MG, 2 IN  1 DAY (S))
     Route: 048
     Dates: end: 20040627
  2. CYTARABINE [Suspect]
     Dosage: 180 MG, INTRAVENOUS
     Route: 042
     Dates: start: 20040617, end: 20040623
  3. HYDREA [Suspect]
     Dosage: 2000 MG , ORAL
     Route: 048
     Dates: start: 20040616, end: 20040616
  4. ALLOPURINOL [Suspect]
     Dosage: 600 MG (300 MG, 2 IN 1 DAY (S)), ORAL
     Route: 048
     Dates: start: 20040616, end: 20040617
  5. VALACYCLOVIR HCL [Suspect]
     Dosage: 500 MG ( 500 MG, 1 IN 1 DAY (S)), INTRAVENOUS
     Route: 042
     Dates: start: 20040616, end: 20040624
  6. IDARUBICIN HCL [Suspect]
     Dosage: 14 MG ( 1 IN 1 DAY (S)), INTRAVENOUS
     Route: 042
     Dates: start: 20040617, end: 20040621
  7. BELUSTINE (LOMUSTINE) [Concomitant]
  8. REQUIP [Concomitant]
  9. LASILIX (FURSEMIDE) [Concomitant]
  10. HEPARIN [Concomitant]
  11. LEXOMIL (BROMAZEPAM) [Concomitant]
  12. FASTURTEC 9RASBURICASE) [Concomitant]

REACTIONS (6)
  - ANAEMIA [None]
  - BACTERIA BLOOD IDENTIFIED [None]
  - HEPATITIS CHOLESTATIC [None]
  - LEUKOPENIA [None]
  - STAPHYLOCOCCAL INFECTION [None]
  - THROMBOCYTOPENIA [None]
